FAERS Safety Report 9133050 (Version 1)
Quarter: 2013Q1

REPORT INFORMATION
  Report Type: Spontaneous
  Country: US (occurrence: US)
  Receive Date: 20130301
  Receipt Date: 20130301
  Transmission Date: 20140127
  Serious: No
  Sender: FDA-Public Use
  Company Number: US-ASTRAZENECA-2013SE12633

PATIENT
  Age: 62 Year
  Sex: Male
  Weight: 104.3 kg

DRUGS (7)
  1. NEXIUM [Suspect]
     Indication: DYSPEPSIA
     Route: 048
     Dates: end: 2011
  2. NEXIUM [Suspect]
     Indication: GASTROOESOPHAGEAL REFLUX DISEASE
     Route: 048
     Dates: end: 2011
  3. NEXIUM [Suspect]
     Indication: BARRETT^S OESOPHAGUS
     Route: 048
     Dates: end: 2011
  4. NEXIUM [Suspect]
     Indication: DYSPEPSIA
     Route: 048
  5. NEXIUM [Suspect]
     Indication: GASTROOESOPHAGEAL REFLUX DISEASE
     Route: 048
  6. NEXIUM [Suspect]
     Indication: BARRETT^S OESOPHAGUS
     Route: 048
  7. CHOLESTEROL MEDICATION [Concomitant]
     Indication: BLOOD CHOLESTEROL INCREASED

REACTIONS (4)
  - Feeling abnormal [Unknown]
  - Dyspepsia [Unknown]
  - Insomnia [Unknown]
  - Intentional drug misuse [Unknown]
